FAERS Safety Report 23063093 (Version 1)
Quarter: 2023Q4

REPORT INFORMATION
  Report Type: Spontaneous
  Country: US (occurrence: None)
  Receive Date: 20231012
  Receipt Date: 20231012
  Transmission Date: 20240109
  Serious: Yes (Other)
  Sender: FDA-Public Use
  Company Number: None

PATIENT
  Age: 31 Year
  Sex: Female

DRUGS (1)
  1. ESCITALOPRAM [Suspect]
     Active Substance: ESCITALOPRAM OXALATE
     Dosage: FREQUENCY : DAILY;?
     Route: 048
     Dates: start: 20230810, end: 20231009

REACTIONS (6)
  - Product dispensing error [None]
  - Product commingling [None]
  - Lethargy [None]
  - Sedation [None]
  - Wrong product administered [None]
  - Feeling abnormal [None]

NARRATIVE: CASE EVENT DATE: 20230810
